FAERS Safety Report 7814828-9 (Version None)
Quarter: 2011Q4

REPORT INFORMATION
  Report Type: 
  Country: None (occurrence: None)
  Receive Date: 20111014
  Receipt Date: 20111007
  Transmission Date: 20120403
  Serious: Yes (Other)
  Sender: FDA-Public Use
  Company Number: PHHY2011NL85418

PATIENT
  Age: 71 Year
  Sex: Female

DRUGS (1)
  1. PREDNISONE [Suspect]
     Indication: POLYMYALGIA RHEUMATICA

REACTIONS (2)
  - DYSPNOEA EXERTIONAL [None]
  - RESPIRATORY ALKALOSIS [None]
